FAERS Safety Report 5907035-8 (Version None)
Quarter: 2008Q4

REPORT INFORMATION
  Report Type: 
  Country: None (occurrence: None)
  Receive Date: 20081003
  Receipt Date: 20080929
  Transmission Date: 20090506
  Serious: Yes (Hospitalization)
  Sender: FDA-Public Use
  Company Number: US-BAYER-200832380NA

PATIENT
  Age: 59 Year
  Sex: Female

DRUGS (4)
  1. NEXAVAR [Suspect]
     Indication: HEPATIC NEOPLASM MALIGNANT
     Dosage: TOTAL DAILY DOSE: 800 MG  UNIT DOSE: 200 MG
     Route: 048
     Dates: start: 20080821
  2. NEXAVAR [Suspect]
     Dosage: TOTAL DAILY DOSE: 400 MG  UNIT DOSE: 200 MG
     Route: 048
     Dates: start: 20080908
  3. INSULIN [Concomitant]
  4. ANTI-REJECTIONS MEDICATIONS [Concomitant]

REACTIONS (8)
  - ANOREXIA [None]
  - BLISTER [None]
  - DEHYDRATION [None]
  - DIARRHOEA [None]
  - LIMB DISCOMFORT [None]
  - PAIN [None]
  - RECTAL HAEMORRHAGE [None]
  - RENAL IMPAIRMENT [None]
